FAERS Safety Report 25791756 (Version 1)
Quarter: 2025Q3

REPORT INFORMATION
  Report Type: Spontaneous
  Country: US (occurrence: US)
  Receive Date: 20250911
  Receipt Date: 20250911
  Transmission Date: 20251020
  Serious: Yes (Hospitalization)
  Sender: IPSEN BIOPHARMACEUTICALS, INC.
  Company Number: US-IPSEN Group, Research and Development-2025-22119

PATIENT
  Age: 66 Year
  Sex: Male

DRUGS (10)
  1. SOMATULINE DEPOT [Suspect]
     Active Substance: LANREOTIDE ACETATE
     Indication: Acromegaly
     Dosage: UNDER THE SKIN
     Route: 058
     Dates: start: 20250225
  2. LEVOFLOXACIN [Concomitant]
     Active Substance: LEVOFLOXACIN
  3. DOCUSATE [Concomitant]
     Active Substance: DOCUSATE
  4. HYDROXYZINE [Concomitant]
     Active Substance: HYDROXYZINE HYDROCHLORIDE
  5. LEVETIRACETAM [Concomitant]
     Active Substance: LEVETIRACETAM
  6. METHADONE [Concomitant]
     Active Substance: METHADONE HYDROCHLORIDE
  7. OXYCODONE [Concomitant]
     Active Substance: OXYCODONE
  8. DONEPEZIL [Concomitant]
     Active Substance: DONEPEZIL
  9. SIMVASTATIN [Concomitant]
     Active Substance: SIMVASTATIN
  10. METFORMIN [Concomitant]
     Active Substance: METFORMIN HYDROCHLORIDE

REACTIONS (2)
  - Seizure [Recovered/Resolved]
  - Infection [Recovered/Resolved]

NARRATIVE: CASE EVENT DATE: 20250804
